FAERS Safety Report 6198837-4 (Version None)
Quarter: 2009Q2

REPORT INFORMATION
  Report Type: 
  Country: None (occurrence: None)
  Receive Date: 20090522
  Receipt Date: 20090511
  Transmission Date: 20091009
  Serious: Yes (Other)
  Sender: FDA-Public Use
  Company Number: US-WYE-H09309109

PATIENT
  Sex: Female
  Weight: 77.18 kg

DRUGS (6)
  1. PRISTIQ [Suspect]
     Indication: DEPRESSION
     Route: 048
     Dates: start: 20090401
  2. PRISTIQ [Suspect]
     Route: 048
     Dates: start: 20090101
  3. THYROID TAB [Concomitant]
     Dosage: UNKNOWN
     Route: 048
  4. WELLBUTRIN [Concomitant]
     Dosage: UNKNOWN
     Route: 048
  5. ATIVAN [Concomitant]
     Dosage: UNKNOWN
     Route: 048
  6. LIPITOR [Concomitant]
     Dosage: UNKNOWN
     Route: 048

REACTIONS (5)
  - CRYING [None]
  - INSOMNIA [None]
  - INTENTIONAL DRUG MISUSE [None]
  - MOOD SWINGS [None]
  - SUICIDAL IDEATION [None]
